FAERS Safety Report 8397371-0 (Version None)
Quarter: 2012Q2

REPORT INFORMATION
  Report Type: 
  Country: None (occurrence: None)
  Receive Date: 20120531
  Receipt Date: 20120521
  Transmission Date: 20120825
  Serious: No
  Sender: FDA-Public Use
  Company Number: US-BIOGENIDEC-2012BI018379

PATIENT
  Sex: Female

DRUGS (3)
  1. TYSABRI [Suspect]
     Indication: MULTIPLE SCLEROSIS
     Route: 042
     Dates: start: 20041223, end: 20050225
  2. TYSABRI [Suspect]
     Route: 042
     Dates: start: 20060802
  3. COPAXONE [Concomitant]
     Indication: MULTIPLE SCLEROSIS

REACTIONS (11)
  - PAIN [None]
  - HYPOAESTHESIA [None]
  - MULTIPLE SCLEROSIS RELAPSE [None]
  - DRUG HYPERSENSITIVITY [None]
  - INJECTION SITE MASS [None]
  - PAIN IN EXTREMITY [None]
  - HEADACHE [None]
  - CARPAL TUNNEL SYNDROME [None]
  - BLOOD GLUCOSE INCREASED [None]
  - ASTHENIA [None]
  - NERVOUSNESS [None]
